FAERS Safety Report 10376750 (Version 1)
Quarter: 2014Q1

REPORT INFORMATION
  Report Type: Spontaneous
  Country: US (occurrence: None)
  Receive Date: 20140306
  Receipt Date: 20140306
  Transmission Date: 20141002
  Serious: Yes (Other)
  Sender: FDA-Public Use
  Company Number: 163-21880-13040232

PATIENT
  Age: 57 Year
  Sex: Male

DRUGS (2)
  1. REVLIMID (LENALIDOMIDE) (CAPSULES) [Suspect]
     Indication: PLASMA CELL MYELOMA
     Dosage: 21 IN 28 D
     Route: 048
     Dates: start: 20120402
  2. DEXAMETHASONE [Concomitant]

REACTIONS (4)
  - Loss of consciousness [None]
  - Hypotension [None]
  - Local swelling [None]
  - Sluggishness [None]
